FAERS Safety Report 8862987 (Version 3)
Quarter: 2012Q4

REPORT INFORMATION
  Report Type: Report from Study
  Country: JP (occurrence: JP)
  Receive Date: 20121026
  Receipt Date: 20121126
  Transmission Date: 20130627
  Serious: Yes (Hospitalization)
  Sender: FDA-Public Use
  Company Number: JP-EISAI INC-E7389-03157-CLI-JP

PATIENT
  Age: 64 Year
  Sex: Male
  Weight: 51 kg

DRUGS (13)
  1. E7389 (BOLD) [Suspect]
     Indication: SARCOMA
     Dosage: UNKNOWN
     Route: 041
     Dates: start: 20120903, end: 20121001
  2. E7389 (BOLD) [Suspect]
     Indication: LIPOSARCOMA
  3. ARTIST [Concomitant]
     Indication: CARDIAC DISORDER
     Route: 048
     Dates: start: 200704
  4. NATRIX [Concomitant]
     Indication: CARDIAC DISORDER
     Route: 048
     Dates: start: 20120514
  5. CRESTOR [Concomitant]
     Indication: HYPERCHOLESTEROLAEMIA
     Route: 048
     Dates: start: 200704
  6. BUFFERIN [Concomitant]
     Indication: CARDIAC DISORDER
     Route: 048
     Dates: start: 200704
  7. VOLTAREN [Concomitant]
     Indication: PYREXIA
     Dates: start: 20120923
  8. LANIRAPID [Concomitant]
     Indication: CARDIAC DISORDER
     Route: 048
     Dates: start: 20120924
  9. TAKEPRON [Concomitant]
     Indication: MUCOSITIS ORAL
     Route: 048
     Dates: start: 20121009
  10. LOXONIN [Concomitant]
     Indication: LUMBAGO
     Route: 048
     Dates: start: 20120530
  11. LOXOPROFEN [Concomitant]
     Indication: LUMBAGO
     Route: 048
     Dates: start: 20121009
  12. LOXOPROFEN [Concomitant]
     Indication: PYREXIA
  13. ALDACTONEA [Concomitant]
     Indication: CARDIAC DISORDER
     Route: 048
     Dates: start: 20120514

REACTIONS (1)
  - Infectious pleural effusion [Recovered/Resolved]
